FAERS Safety Report 9639896 (Version 1)
Quarter: 2013Q4

REPORT INFORMATION
  Report Type: Spontaneous
  Country: JP (occurrence: JP)
  Receive Date: 20131023
  Receipt Date: 20131023
  Transmission Date: 20140711
  Serious: Yes (Other)
  Sender: FDA-Public Use
  Company Number: JP-ACCORD-020045

PATIENT
  Age: 23 Year
  Sex: Female

DRUGS (1)
  1. TACROLIMUS [Suspect]
     Indication: COLITIS ULCERATIVE

REACTIONS (2)
  - Post transplant distal limb syndrome [Recovering/Resolving]
  - Off label use [Unknown]
